FAERS Safety Report 21749424 (Version 1)
Quarter: 2022Q4

REPORT INFORMATION
  Report Type: Report from Study
  Country: US (occurrence: US)
  Receive Date: 20221219
  Receipt Date: 20221219
  Transmission Date: 20230112
  Serious: Yes (Hospitalization)
  Sender: FDA-Public Use
  Company Number: US-GILEAD-2022-0609410

PATIENT
  Sex: Male

DRUGS (1)
  1. AZTREONAM LYSINE [Suspect]
     Active Substance: AZTREONAM LYSINE
     Indication: Cystic fibrosis
     Dosage: 75 MG INHALATION THREE TIMES DAILY. CONTINUOUS. NO OFF TIME
     Route: 055

REACTIONS (3)
  - Dyspnoea [Unknown]
  - Depressed mood [Unknown]
  - Haemoptysis [Unknown]
